FAERS Safety Report 5510094-8 (Version None)
Quarter: 2007Q4

REPORT INFORMATION
  Report Type: 
  Country: None (occurrence: None)
  Receive Date: 20071106
  Receipt Date: 20071018
  Transmission Date: 20080405
  Serious: Yes (Death)
  Sender: FDA-Public Use
  Company Number: S07-NLD-05637-01

PATIENT
  Age: 66 Year
  Sex: 0
  Weight: 80 kg

DRUGS (5)
  1. CITALOPRAM [Suspect]
     Indication: DEPRESSION
     Dosage: 40 MG QD PO
     Route: 048
     Dates: start: 20070925, end: 20070927
  2. ASCAL                   (CARBASALATE CALCIUM) [Suspect]
     Indication: CEREBROVASCULAR ACCIDENT
     Dosage: 100 MG QD
     Dates: start: 20070709, end: 20070927
  3. PREDNISONE [Concomitant]
  4. ZALDIAR                (ULTRACET) [Concomitant]
  5. PRAVASTATIN [Concomitant]

REACTIONS (2)
  - DRUG INTERACTION [None]
  - PULMONARY HAEMORRHAGE [None]
